FAERS Safety Report 16444679 (Version 2)
Quarter: 2019Q2

REPORT INFORMATION
  Report Type: Spontaneous
  Country: PT (occurrence: PT)
  Receive Date: 20190618
  Receipt Date: 20190621
  Transmission Date: 20190711
  Serious: No
  Sender: FDA-Public Use
  Company Number: PT-009507513-1906PRT006634

PATIENT
  Age: 58 Year
  Sex: Male

DRUGS (2)
  1. MIRTAZAPINE. [Suspect]
     Active Substance: MIRTAZAPINE
     Indication: ADJUSTMENT DISORDER WITH ANXIETY
     Dosage: UP TO 30 MG/DAY
  2. MIRTAZAPINE. [Suspect]
     Active Substance: MIRTAZAPINE
     Indication: ADJUSTMENT DISORDER WITH DEPRESSED MOOD
     Dosage: ONE WEEK AFTER THE 30 MG/DAY DOSE

REACTIONS (3)
  - Product use in unapproved indication [Unknown]
  - Dysphoria [Recovered/Resolved]
  - Mania [Recovered/Resolved]
